FAERS Safety Report 14883811 (Version 5)
Quarter: 2018Q4

REPORT INFORMATION
  Report Type: Spontaneous
  Country: US (occurrence: US)
  Receive Date: 20180511
  Receipt Date: 20181129
  Transmission Date: 20190204
  Serious: No
  Sender: FDA-Public Use
  Company Number: US-LEXICON PHARMACEUTICALS, INC-18-1606-00480

PATIENT
  Age: 69 Year
  Sex: Female
  Weight: 58.57 kg

DRUGS (31)
  1. ZOLPIDEM [Concomitant]
     Active Substance: ZOLPIDEM\ZOLPIDEM TARTRATE
  2. CINNAMON. [Concomitant]
     Active Substance: CINNAMON
  3. CAL-CITRATE PLUS VITAMIN D [Concomitant]
     Dosage: 250-100 MG - UNITS
  4. CRANBERRY. [Concomitant]
     Active Substance: CRANBERRY
  5. VITAMIN C [Concomitant]
     Active Substance: ASCORBIC ACID
  6. PREVALITE [Concomitant]
     Active Substance: CHOLESTYRAMINE
  7. XELODA [Concomitant]
     Active Substance: CAPECITABINE
  8. SANDOSTATIN [Concomitant]
     Active Substance: OCTREOTIDE ACETATE
     Dosage: 50 MCG/ML
  9. PROCHLORPERAZINE. [Concomitant]
     Active Substance: PROCHLORPERAZINE
  10. SIMVASTATIN. [Concomitant]
     Active Substance: SIMVASTATIN
  11. MULTIVITAMIN ADULT [Concomitant]
  12. ONDANSETRON [Concomitant]
     Active Substance: ONDANSETRON
  13. TELOTRISTAT ETHYL [Suspect]
     Active Substance: TELOTRISTAT ETHYL
     Indication: NEUROENDOCRINE TUMOUR OF THE LUNG
     Route: 048
     Dates: start: 201703
  14. VAGIFEM [Concomitant]
     Active Substance: ESTRADIOL
  15. AFINITOR [Concomitant]
     Active Substance: EVEROLIMUS
  16. TELOTRISTAT ETHYL [Suspect]
     Active Substance: TELOTRISTAT ETHYL
     Indication: CARCINOID TUMOUR
     Route: 048
     Dates: start: 201804, end: 2018
  17. DIPHEN/ATROP [Concomitant]
     Active Substance: ATROPINE SULFATE\DIPHENOXYLATE
  18. TELOTRISTAT ETHYL [Suspect]
     Active Substance: TELOTRISTAT ETHYL
     Indication: NEUROENDOCRINE TUMOUR
     Route: 048
     Dates: start: 2018
  19. COENZYME Q10 [Concomitant]
     Active Substance: UBIDECARENONE
  20. TELOTRISTAT ETHYL [Suspect]
     Active Substance: TELOTRISTAT ETHYL
     Indication: CARCINOID SYNDROME
     Route: 048
     Dates: start: 20170326, end: 201804
  21. TELOTRISTAT ETHYL [Suspect]
     Active Substance: TELOTRISTAT ETHYL
     Route: 048
     Dates: start: 2018
  22. ZOLOFT [Concomitant]
     Active Substance: SERTRALINE HYDROCHLORIDE
  23. VITAMIN B12 [Concomitant]
     Active Substance: CYANOCOBALAMIN
  24. PROBIOTIC [Concomitant]
     Active Substance: PROBIOTICS NOS
  25. LOPERAMIDE [Concomitant]
     Active Substance: LOPERAMIDE
  26. FLUTICASONE PROPIONATE. [Concomitant]
     Active Substance: FLUTICASONE PROPIONATE
  27. TEMODAR [Concomitant]
     Active Substance: TEMOZOLOMIDE
  28. CURCUMIN [Concomitant]
     Active Substance: CURCUMIN
     Dosage: 95 500 MG
  29. OMEGA 3 [Concomitant]
     Active Substance: OMEGA-3 FATTY ACIDS
  30. VITAMIN D [Concomitant]
     Active Substance: CHOLECALCIFEROL
  31. TYLENOL [Concomitant]
     Active Substance: ACETAMINOPHEN

REACTIONS (2)
  - Diarrhoea [Recovered/Resolved]
  - Constipation [Recovered/Resolved with Sequelae]

NARRATIVE: CASE EVENT DATE: 2018
